FAERS Safety Report 11996290 (Version 1)
Quarter: 2016Q1

REPORT INFORMATION
  Report Type: Report from Study
  Country: US (occurrence: US)
  Receive Date: 20160203
  Receipt Date: 20160203
  Transmission Date: 20160526
  Serious: Yes (Hospitalization)
  Sender: FDA-Public Use
  Company Number: US-JACOBUS PHARMACEUTICAL COMPANY, INC.-1047277

PATIENT
  Age: 63 Year
  Sex: Female

DRUGS (46)
  1. DAPSONE. [Suspect]
     Active Substance: DAPSONE
  2. ZOFRAN [Concomitant]
     Active Substance: ONDANSETRON HYDROCHLORIDE
  3. CLOTRIMAZOLE TROCHE [Concomitant]
     Active Substance: CLOTRIMAZOLE
  4. FENTANYL. [Concomitant]
     Active Substance: FENTANYL
  5. VALCYTE [Concomitant]
     Active Substance: VALGANCICLOVIR HYDROCHLORIDE
  6. METHYLPREDNISOLONE. [Concomitant]
     Active Substance: METHYLPREDNISOLONE
  7. MIRALAX [Concomitant]
     Active Substance: POLYETHYLENE GLYCOL 3350
  8. OMEPRAZOLE. [Concomitant]
     Active Substance: OMEPRAZOLE
  9. INSULIN [Concomitant]
     Active Substance: INSULIN NOS
  10. NORCO [Concomitant]
     Active Substance: ACETAMINOPHEN\HYDROCODONE BITARTRATE
  11. METOCLOPRAMIDE. [Concomitant]
     Active Substance: METOCLOPRAMIDE
  12. BUMEX [Concomitant]
     Active Substance: BUMETANIDE
  13. NIMBEX [Concomitant]
     Active Substance: CISATRACURIUM BESYLATE
  14. NEOSTIGMINE [Concomitant]
     Active Substance: NEOSTIGMINE
  15. SOLU-CORTEF [Concomitant]
     Active Substance: HYDROCORTISONE SODIUM SUCCINATE
  16. DICYCLOMINE [Concomitant]
     Active Substance: DICYCLOMINE HYDROCHLORIDE
  17. LORAZEPAM. [Concomitant]
     Active Substance: LORAZEPAM
  18. POTASSIUM CHLORIDE. [Concomitant]
     Active Substance: POTASSIUM CHLORIDE
  19. PROPOFOL. [Concomitant]
     Active Substance: PROPOFOL
  20. MORPHINE [Concomitant]
     Active Substance: MORPHINE
  21. KRISTALOSE [Concomitant]
     Active Substance: LACTULOSE
  22. MAGNESIUM OXIDE. [Concomitant]
     Active Substance: MAGNESIUM OXIDE
  23. TACROLIMUS. [Concomitant]
     Active Substance: TACROLIMUS
  24. ERTRAPENEM [Concomitant]
  25. FAMOTIDINE. [Concomitant]
     Active Substance: FAMOTIDINE
  26. DULCOLAX NOS [Concomitant]
     Active Substance: BISACODYL OR DOCUSATE SODIUM
  27. ALBUMIN (HUMAN). [Concomitant]
     Active Substance: ALBUMIN (HUMAN)
  28. FLUTICASONE [Concomitant]
     Active Substance: FLUTICASONE\FLUTICASONE PROPIONATE
  29. ZYRTEC [Concomitant]
     Active Substance: CETIRIZINE HYDROCHLORIDE
  30. ROCEPHIN [Concomitant]
     Active Substance: CEFTRIAXONE SODIUM
  31. SCOPOLAMINE (LEVO-DUBOISINE AND HYOSCINE) [Concomitant]
  32. ROBINUL [Concomitant]
     Active Substance: GLYCOPYRROLATE
  33. CALCIUM CHLORIDE. [Concomitant]
     Active Substance: CALCIUM CHLORIDE
  34. ASPIRIN. [Concomitant]
     Active Substance: ASPIRIN
  35. RENA-VITE [Concomitant]
     Active Substance: ASCORBIC ACID\BIOTIN\CALCIUM PANTOTHENATE\CYANOCOBALAMIN\FOLIC ACID\NIACINAMIDE\PYRIDOXINE HYDROCHLORIDE\RIBOFLAVIN\THIAMINE MONONITRATE
  36. MAGNESIUM SULFATE. [Concomitant]
     Active Substance: MAGNESIUM SULFATE
  37. PHENYLEPHRINE [Concomitant]
     Active Substance: PHENYLEPHRINE\PHENYLEPHRINE HYDROCHLORIDE
  38. EPHENDRINE [Concomitant]
  39. PROPANOLOL [Concomitant]
     Active Substance: PROPRANOLOL HYDROCHLORIDE
  40. SIMULECT [Concomitant]
     Active Substance: BASILIXIMAB
  41. PREDNISONE. [Concomitant]
     Active Substance: PREDNISONE
  42. TYLENOL [Concomitant]
     Active Substance: ACETAMINOPHEN
  43. DOCUSATE SODIUM. [Concomitant]
     Active Substance: DOCUSATE SODIUM
  44. MIDAZOLAM [Concomitant]
     Active Substance: MIDAZOLAM\MIDAZOLAM HYDROCHLORIDE
  45. LASIX [Concomitant]
     Active Substance: FUROSEMIDE
  46. MYFORTIC [Concomitant]
     Active Substance: MYCOPHENOLATE SODIUM

REACTIONS (1)
  - Methaemoglobinaemia [Recovered/Resolved]

NARRATIVE: CASE EVENT DATE: 20121110
